FAERS Safety Report 5269319-9 (Version None)
Quarter: 2007Q1

REPORT INFORMATION
  Report Type: 
  Country: None (occurrence: None)
  Receive Date: 20070319
  Receipt Date: 20070307
  Transmission Date: 20070707
  Serious: Yes (Other)
  Sender: FDA-Public Use
  Company Number: FR-PFIZER INC-2007011026

PATIENT
  Sex: Female
  Weight: 58 kg

DRUGS (4)
  1. LYRICA [Suspect]
     Indication: NEURALGIA
     Route: 048
     Dates: start: 20060626, end: 20060630
  2. TETRAZEPAM [Concomitant]
     Indication: NEURALGIA
     Route: 048
  3. ACETAMINOPHEN W/ PROPOXYPHENE HCL [Concomitant]
     Indication: NEURALGIA
     Route: 048
     Dates: start: 20050101
  4. AMITRIPTYLINE HYDROCHLORIDE [Concomitant]
     Route: 048
     Dates: start: 20050201

REACTIONS (4)
  - DYSPNOEA [None]
  - HEADACHE [None]
  - TACHYCARDIA [None]
  - VISUAL DISTURBANCE [None]
